FAERS Safety Report 9549323 (Version 2)
Quarter: 2014Q2

REPORT INFORMATION
  Report Type: Spontaneous
  Country: RU (occurrence: RU)
  Receive Date: 20130924
  Receipt Date: 20140507
  Transmission Date: 20141212
  Serious: Yes (Other)
  Sender: FDA-Public Use
  Company Number: RU-SANOFI-AVENTIS-2013SA091279

PATIENT
  Age: 42 Year
  Sex: Female

DRUGS (2)
  1. TAXOTERE [Suspect]
     Indication: BREAST CANCER
     Dosage: STRENGTH: 160 MG
     Route: 042
     Dates: start: 20130905, end: 20130905
  2. TAXOTERE [Suspect]
     Indication: BREAST CANCER
     Dosage: STRENGTH: 160 MG
     Route: 065
     Dates: start: 2013, end: 2013

REACTIONS (3)
  - Skin disorder [Recovering/Resolving]
  - Constipation [Recovered/Resolved]
  - Menorrhagia [Not Recovered/Not Resolved]
